FAERS Safety Report 23024885 (Version 1)
Quarter: 2023Q4

REPORT INFORMATION
  Report Type: Spontaneous
  Country: US (occurrence: US)
  Receive Date: 20231004
  Receipt Date: 20231004
  Transmission Date: 20240110
  Serious: Yes (Hospitalization)
  Sender: FDA-Public Use
  Company Number: US-SERVIER-S23010930

PATIENT

DRUGS (7)
  1. ASPARLAS [Suspect]
     Active Substance: CALASPARGASE PEGOL-MKNL
     Indication: T-cell type acute leukaemia
     Dosage: 3750 U, ONE DOSE
     Route: 042
     Dates: end: 20230915
  2. ASPARLAS [Suspect]
     Active Substance: CALASPARGASE PEGOL-MKNL
     Dosage: 3750 U, ONE DOSE
     Route: 042
     Dates: start: 20230915, end: 20230915
  3. METHOTREXATE [Concomitant]
     Active Substance: METHOTREXATE
     Indication: T-cell type acute leukaemia
     Dosage: 15 MG, ONE DOSE
     Route: 037
     Dates: start: 20230915, end: 20230915
  4. VINCRISTINE [Concomitant]
     Active Substance: VINCRISTINE
     Indication: T-cell type acute leukaemia
     Dosage: 2 MG, ONE DOSE
     Route: 042
     Dates: start: 20230915, end: 20230915
  5. BENADRYL [Concomitant]
     Active Substance: DIPHENHYDRAMINE HYDROCHLORIDE
     Indication: Premedication
     Dosage: UNK
     Route: 065
     Dates: start: 20230915, end: 20230915
  6. SOLU-MEDROL [Concomitant]
     Active Substance: METHYLPREDNISOLONE SODIUM SUCCINATE
     Indication: Premedication
     Dosage: UNK
     Route: 065
     Dates: start: 20230915, end: 20230915
  7. PEPCID [Concomitant]
     Active Substance: FAMOTIDINE
     Indication: Premedication
     Dosage: UNK
     Route: 065
     Dates: start: 20230915, end: 20230915

REACTIONS (1)
  - Hypersensitivity [Recovered/Resolved]

NARRATIVE: CASE EVENT DATE: 20230915
